FAERS Safety Report 23843267 (Version 1)
Quarter: 2024Q2

REPORT INFORMATION
  Report Type: Spontaneous
  Country: US (occurrence: US)
  Receive Date: 20240510
  Receipt Date: 20240510
  Transmission Date: 20240716
  Serious: No
  Sender: FDA-Public Use
  Company Number: US-VERTEX PHARMACEUTICALS-2024-007800

PATIENT
  Age: 40 Year
  Sex: Male

DRUGS (1)
  1. TRIKAFTA [Suspect]
     Active Substance: ELEXACAFTOR\IVACAFTOR\TEZACAFTOR
     Indication: Cystic fibrosis
     Dosage: UNKNOWN DOSAGE REGIMEN
     Route: 048

REACTIONS (9)
  - Illness [Unknown]
  - Infection [Recovered/Resolved]
  - Back pain [Recovered/Resolved]
  - Pneumonitis [Not Recovered/Not Resolved]
  - Abscess [Not Recovered/Not Resolved]
  - Aspergillus infection [Unknown]
  - Obstructive airways disorder [Not Recovered/Not Resolved]
  - Asthma [Not Recovered/Not Resolved]
  - Cough [Recovering/Resolving]
